FAERS Safety Report 17315550 (Version 3)
Quarter: 2021Q1

REPORT INFORMATION
  Report Type: Report from Study
  Country: US (occurrence: US)
  Receive Date: 20200124
  Receipt Date: 20210113
  Transmission Date: 20210419
  Serious: Yes (Hospitalization, Other)
  Sender: FDA-Public Use
  Company Number: NVSC2020US013014

PATIENT
  Age: 5 Year
  Sex: Male
  Weight: 21 kg

DRUGS (20)
  1. DIPHENHYDRAMINE. [Concomitant]
     Active Substance: DIPHENHYDRAMINE
     Indication: PRODUCT USED FOR UNKNOWN INDICATION
     Dosage: UNK
     Route: 065
     Dates: start: 20191218, end: 20191228
  2. LEVALBUTEROL. [Concomitant]
     Active Substance: LEVALBUTEROL
     Indication: PRODUCT USED FOR UNKNOWN INDICATION
     Dosage: UNK
     Route: 065
     Dates: start: 20191212
  3. GSK1120212 [Suspect]
     Active Substance: TRAMETINIB
     Dosage: 0.475 MG, QD
     Route: 048
     Dates: start: 20201215
  4. IODINE. [Concomitant]
     Active Substance: IODINE
     Indication: PRODUCT USED FOR UNKNOWN INDICATION
     Dosage: UNK
     Route: 065
     Dates: start: 20191212, end: 20191213
  5. LISINOPRIL. [Concomitant]
     Active Substance: LISINOPRIL
     Indication: PRODUCT USED FOR UNKNOWN INDICATION
     Dosage: UNK
     Route: 065
     Dates: start: 20191212
  6. ACETAMINOPHEN. [Concomitant]
     Active Substance: ACETAMINOPHEN
     Indication: PRODUCT USED FOR UNKNOWN INDICATION
     Dosage: UNK
     Route: 065
     Dates: start: 20191211, end: 20191211
  7. CARVEDILOL. [Concomitant]
     Active Substance: CARVEDILOL
     Indication: PRODUCT USED FOR UNKNOWN INDICATION
     Dosage: UNK
     Route: 065
     Dates: start: 20191212
  8. DEXAMETHASONE. [Concomitant]
     Active Substance: DEXAMETHASONE
     Indication: PRODUCT USED FOR UNKNOWN INDICATION
     Dosage: UNK
     Route: 065
     Dates: start: 20200103, end: 20200103
  9. ESOMEPRAZOLE. [Concomitant]
     Active Substance: ESOMEPRAZOLE MAGNESIUM
     Indication: PRODUCT USED FOR UNKNOWN INDICATION
     Dosage: UNK
     Route: 065
     Dates: start: 20191217
  10. FAMOTIDINE. [Concomitant]
     Active Substance: FAMOTIDINE
     Indication: PRODUCT USED FOR UNKNOWN INDICATION
     Dosage: UNK
     Route: 065
     Dates: start: 20191212
  11. PENTAMIDINE ISETHIONATE. [Concomitant]
     Active Substance: PENTAMIDINE ISETHIONATE
     Indication: PRODUCT USED FOR UNKNOWN INDICATION
     Dosage: UNK
     Route: 065
     Dates: start: 20191216, end: 20191216
  12. GSK1120212 [Suspect]
     Active Substance: TRAMETINIB
     Indication: NEUROBLASTOMA
     Dosage: 0.5 MG, QD
     Route: 048
     Dates: start: 20191101, end: 20191123
  13. CLINDAMYCIN. [Concomitant]
     Active Substance: CLINDAMYCIN
     Indication: PRODUCT USED FOR UNKNOWN INDICATION
     Dosage: UNK
     Route: 065
     Dates: start: 20191211, end: 20191221
  14. CEFEPIME [Concomitant]
     Active Substance: CEFEPIME HYDROCHLORIDE
     Indication: PRODUCT USED FOR UNKNOWN INDICATION
     Dosage: UNK
     Route: 065
     Dates: start: 20191211, end: 20191223
  15. GSK1120212 [Suspect]
     Active Substance: TRAMETINIB
     Dosage: 0.5 MG, QD
     Route: 048
     Dates: start: 20191124, end: 20191212
  16. GSK1120212 [Suspect]
     Active Substance: TRAMETINIB
     Dosage: 0.475 MG, QD
     Route: 048
     Dates: start: 20200108, end: 20201213
  17. GABAPENTIN. [Concomitant]
     Active Substance: GABAPENTIN
     Indication: PRODUCT USED FOR UNKNOWN INDICATION
     Dosage: UNK
     Route: 065
     Dates: start: 20191212
  18. VANCOMYCIN [Concomitant]
     Active Substance: VANCOMYCIN
     Indication: PRODUCT USED FOR UNKNOWN INDICATION
     Dosage: UNK
     Route: 065
     Dates: start: 20191212, end: 20200116
  19. ONDANSETRON [Concomitant]
     Active Substance: ONDANSETRON
     Indication: PRODUCT USED FOR UNKNOWN INDICATION
     Dosage: UNK
     Route: 065
     Dates: start: 20191214
  20. FLUTICASONE. [Concomitant]
     Active Substance: FLUTICASONE
     Indication: PRODUCT USED FOR UNKNOWN INDICATION
     Dosage: UNK
     Route: 065
     Dates: start: 20191212

REACTIONS (13)
  - Malignant neoplasm progression [Not Recovered/Not Resolved]
  - Condition aggravated [Recovering/Resolving]
  - Bacteraemia [Recovered/Resolved]
  - Blood culture positive [Unknown]
  - Hypoxia [Unknown]
  - Enterovirus infection [Recovered/Resolved]
  - Small intestinal obstruction [Recovering/Resolving]
  - Cough [Not Recovered/Not Resolved]
  - Vomiting [Unknown]
  - Abdominal pain [Unknown]
  - Pyrexia [Recovered/Resolved]
  - Lung infiltration [Unknown]
  - Neuroblastoma [Not Recovered/Not Resolved]

NARRATIVE: CASE EVENT DATE: 20191211
